FAERS Safety Report 13962947 (Version 3)
Quarter: 2017Q4

REPORT INFORMATION
  Report Type: Spontaneous
  Country: BR (occurrence: BR)
  Receive Date: 20170913
  Receipt Date: 20171011
  Transmission Date: 20180320
  Serious: Yes (Other)
  Sender: FDA-Public Use
  Company Number: BR-AUROBINDO-AUR-APL-2017-39792

PATIENT
  Age: 40 Year
  Sex: Male

DRUGS (2)
  1. SERTRALINE [Suspect]
     Active Substance: SERTRALINE HYDROCHLORIDE
     Indication: DEPRESSION
     Dosage: 50 MG, DAILY
     Route: 048
     Dates: start: 20170809, end: 20170830
  2. DIPYRONE [Concomitant]
     Active Substance: DIPYRONE
     Indication: ANALGESIC THERAPY
     Route: 048

REACTIONS (5)
  - Apnoea [Recovered/Resolved]
  - Somnolence [Recovered/Resolved]
  - Condition aggravated [Recovered/Resolved]
  - Insomnia [Recovered/Resolved]
  - Orgasm abnormal [Recovered/Resolved]

NARRATIVE: CASE EVENT DATE: 20170811
